FAERS Safety Report 7162002-4 (Version None)
Quarter: 2010Q4

REPORT INFORMATION
  Report Type: 
  Country: None (occurrence: None)
  Receive Date: 20101215
  Receipt Date: 20100812
  Transmission Date: 20110411
  Serious: Yes (Other)
  Sender: FDA-Public Use
  Company Number: JP-PFIZER INC-2010088708

PATIENT
  Age: 88 Year
  Sex: Female
  Weight: 70 kg

DRUGS (12)
  1. LYRICA [Suspect]
     Indication: POST HERPETIC NEURALGIA
     Dosage: 75 MG, 2X/DAY
     Route: 048
     Dates: start: 20100705, end: 20100707
  2. MAINTATE [Concomitant]
     Dosage: 2.5 MG, 1X/DAY
     Route: 048
  3. OLMETEC [Concomitant]
     Dosage: 20 MG, 1X/DAY
     Route: 048
  4. TRICHLORMETHIAZIDE [Concomitant]
     Dosage: 2 MG, 1X/DAY
     Route: 048
  5. NORVASC [Concomitant]
     Dosage: 5 MG, 1X/DAY
     Route: 048
  6. ETIZOLAM [Concomitant]
     Dosage: 0.5 MG, 1X/DAY
     Route: 048
  7. LOXONIN [Concomitant]
     Indication: PAIN
     Dosage: 60 MG, 2X/DAY
     Route: 048
  8. TERNELIN [Concomitant]
     Indication: PAIN
     Dosage: 1 MG, 2X/DAY
     Route: 048
  9. MUCOSTA [Concomitant]
     Dosage: 100 MG, 2X/DAY
     Route: 048
     Dates: start: 20100601
  10. ADRENAL CORTICAL EX/MUCOPOLYSACCHARIDE PS A ESTER/SALICYLIC ACID [Concomitant]
  11. WARFARIN [Concomitant]
     Dosage: 1 MG, 1X/DAY
     Route: 048
     Dates: start: 20100601, end: 20100703
  12. WARFARIN [Concomitant]
     Dosage: 1 MG, 2X/DAY
     Route: 048
     Dates: start: 20100704

REACTIONS (1)
  - CHEST DISCOMFORT [None]
